FAERS Safety Report 6882829-3 (Version None)
Quarter: 2010Q3

REPORT INFORMATION
  Report Type: 
  Country: None (occurrence: None)
  Receive Date: 20100702
  Receipt Date: 20090623
  Transmission Date: 20110219
  Serious: Yes (Other)
  Sender: FDA-Public Use
  Company Number: 2009215951

PATIENT
  Sex: Female
  Weight: 88 kg

DRUGS (2)
  1. ZOLOFT [Suspect]
     Indication: DEPRESSION
     Dates: start: 19970101
  2. DIURETICS [Concomitant]

REACTIONS (1)
  - AMNESIA [None]
